FAERS Safety Report 7755018-8 (Version None)
Quarter: 2011Q3

REPORT INFORMATION
  Report Type: 
  Country: None (occurrence: None)
  Receive Date: 20110916
  Receipt Date: 20110913
  Transmission Date: 20111222
  Serious: Yes (Other)
  Sender: FDA-Public Use
  Company Number: AU-BRISTOL-MYERS SQUIBB COMPANY-15948862

PATIENT
  Age: 52 Year
  Sex: Male
  Weight: 71 kg

DRUGS (12)
  1. VYTORIN [Concomitant]
  2. PREDNISOLONE [Concomitant]
  3. NEXIUM [Concomitant]
  4. AMOXICILLIN [Concomitant]
  5. METHOTREXATE [Concomitant]
  6. PLAVIX [Concomitant]
  7. CALCIUM CARBONATE [Concomitant]
     Route: 048
  8. FOLIC ACID [Concomitant]
     Dosage: 5MG/6D/WK
  9. TARKA [Concomitant]
  10. ORENCIA [Suspect]
     Indication: RHEUMATOID ARTHRITIS
     Dosage: LAST INF ON 29JUL2011
     Dates: start: 20110406
  11. DURAGESIC-100 [Concomitant]
     Dosage: PATCHES
  12. ACETAMINOPHEN W/ CODEINE [Concomitant]
     Route: 048

REACTIONS (2)
  - JOINT SWELLING [None]
  - HERNIA [None]
